FAERS Safety Report 15471681 (Version 3)
Quarter: 2020Q3

REPORT INFORMATION
  Report Type: Spontaneous
  Country: US (occurrence: US)
  Receive Date: 20181008
  Receipt Date: 20200914
  Transmission Date: 20201102
  Serious: Yes (Hospitalization)
  Sender: FDA-Public Use
  Company Number: US-JNJFOC-20180932480

PATIENT
  Age: 83 Year
  Sex: Male

DRUGS (2)
  1. XARELTO [Suspect]
     Active Substance: RIVAROXABAN
     Indication: DEEP VEIN THROMBOSIS
     Route: 048
     Dates: start: 201510, end: 201510
  2. ASPIRIN                            /00002701/ [Suspect]
     Active Substance: ASPIRIN
     Dosage: IN VARYING DOSE OF 325 MG AND 81 MG
     Route: 048

REACTIONS (2)
  - Mouth haemorrhage [Recovering/Resolving]
  - Urogenital haemorrhage [Recovering/Resolving]

NARRATIVE: CASE EVENT DATE: 20151024
